FAERS Safety Report 5513348-4 (Version None)
Quarter: 2007Q4

REPORT INFORMATION
  Report Type: 
  Country: None (occurrence: None)
  Receive Date: 20071108
  Receipt Date: 20071029
  Transmission Date: 20080405
  Serious: Yes (Hospitalization)
  Sender: FDA-Public Use
  Company Number: 07H-163-0313409-00

PATIENT
  Age: 71 Year
  Sex: Female
  Weight: 86.9 kg

DRUGS (13)
  1. MIDAZOLAM HYDROCHLORIDE [Suspect]
     Indication: SEDATION
     Dosage: 2-8 ML, HOURLY, INTRAVENOUS
     Route: 042
     Dates: start: 20051114
  2. DUONEB [Concomitant]
  3. DULCOLAX [Concomitant]
  4. KLONOPIN [Concomitant]
  5. FAMOTIDINE [Concomitant]
  6. LASIX [Concomitant]
  7. TIMENTIN (TIMENTIN) [Concomitant]
  8. NOVOLIN-INSULIN (INSULIN NOVOLIN 70/30) [Concomitant]
  9. REGULAR INSULIN [Concomitant]
  10. LEVAQUIN [Concomitant]
  11. LOPRESSOR [Concomitant]
  12. KCL TAB [Concomitant]
  13. 0.45 NS WITH 30 KCL (SODIUM CHLORIDE) [Concomitant]

REACTIONS (10)
  - CARDIAC FAILURE CONGESTIVE [None]
  - CORONARY ARTERY DISEASE [None]
  - DELIRIUM [None]
  - DIABETES MELLITUS [None]
  - MYOCARDIAL INFARCTION [None]
  - MYOCARDIAL ISCHAEMIA [None]
  - RESPIRATORY FAILURE [None]
  - SINUS ARRHYTHMIA [None]
  - SINUS TACHYCARDIA [None]
  - SPINAL COMPRESSION FRACTURE [None]
